FAERS Safety Report 9454119 (Version 1)
Quarter: 2013Q3

REPORT INFORMATION
  Report Type: Spontaneous
  Country: FR (occurrence: FR)
  Receive Date: 20130812
  Receipt Date: 20130812
  Transmission Date: 20140515
  Serious: Yes (Other)
  Sender: FDA-Public Use
  Company Number: FR-PFIZER INC-2013228400

PATIENT
  Sex: 0

DRUGS (1)
  1. FELDENE [Suspect]
     Indication: BACK PAIN
     Dosage: 1 DF, 1X/DAY
     Route: 064
     Dates: start: 20130709, end: 20130713

REACTIONS (2)
  - Maternal exposure during pregnancy [Recovering/Resolving]
  - Renal failure [Recovering/Resolving]
